FAERS Safety Report 13246511 (Version 1)
Quarter: 2017Q1

REPORT INFORMATION
  Report Type: Spontaneous
  Country: US (occurrence: US)
  Receive Date: 20170217
  Receipt Date: 20170217
  Transmission Date: 20170428
  Serious: No
  Sender: FDA-Public Use
  Company Number: US-AMGEN-USASP2017024771

PATIENT
  Age: 58 Year
  Sex: Female

DRUGS (1)
  1. ENBREL [Suspect]
     Active Substance: ETANERCEPT
     Indication: RHEUMATOID ARTHRITIS
     Dosage: 50 MG, QWK
     Route: 058
     Dates: start: 20160920

REACTIONS (5)
  - Injection site bruising [Unknown]
  - Burning sensation [Unknown]
  - Hot flush [Unknown]
  - Injection site pain [Unknown]
  - Treatment failure [Unknown]

NARRATIVE: CASE EVENT DATE: 201609
